FAERS Safety Report 20669132 (Version 1)
Quarter: 2022Q2

REPORT INFORMATION
  Report Type: Report from Study
  Country: US (occurrence: US)
  Receive Date: 20220404
  Receipt Date: 20220404
  Transmission Date: 20220720
  Serious: Yes (Death, Other)
  Sender: FDA-Public Use
  Company Number: US-GLAXOSMITHKLINE-US2022AMR058776

PATIENT
  Sex: Male

DRUGS (1)
  1. BELANTAMAB MAFODOTIN [Suspect]
     Active Substance: BELANTAMAB MAFODOTIN
     Indication: Product used for unknown indication
     Dosage: 2.5 MG/KG

REACTIONS (4)
  - Plasma cell myeloma [Fatal]
  - Light chain analysis increased [Unknown]
  - Hospice care [Unknown]
  - Quality of life decreased [Unknown]
